FAERS Safety Report 8237957-7 (Version None)
Quarter: 2012Q1

REPORT INFORMATION
  Report Type: 
  Country: None (occurrence: None)
  Receive Date: 20120327
  Receipt Date: 20120320
  Transmission Date: 20120608
  Serious: Yes (Hospitalization)
  Sender: FDA-Public Use
  Company Number: US-ACTELION-A-NJ2012-61964

PATIENT

DRUGS (6)
  1. OXYGEN [Concomitant]
  2. LASIX [Concomitant]
  3. EPOPROSTENOL SODIUM [Suspect]
     Indication: PULMONARY ARTERIAL HYPERTENSION
     Dosage: 35 NG/KG, PER MIN
     Route: 041
     Dates: start: 20111111, end: 20120301
  4. TRACLEER [Concomitant]
     Indication: PULMONARY ARTERIAL HYPERTENSION
     Dosage: 125 MG, BID
     Route: 048
     Dates: start: 20110713
  5. EPOPROSTENOL SODIUM [Suspect]
     Dosage: 30 NG/KG, PER MIN
     Route: 041
     Dates: start: 20120301
  6. SILDENAFIL [Concomitant]

REACTIONS (6)
  - RENAL FAILURE ACUTE [None]
  - DEHYDRATION [None]
  - ASTHENIA [None]
  - DYSPNOEA [None]
  - OEDEMA [None]
  - ATELECTASIS [None]
